FAERS Safety Report 14761783 (Version 1)
Quarter: 2018Q2

REPORT INFORMATION
  Report Type: Spontaneous
  Country: US (occurrence: US)
  Receive Date: 20180416
  Receipt Date: 20180416
  Transmission Date: 20180711
  Serious: No
  Sender: FDA-Public Use
  Company Number: US-BION-006414

PATIENT
  Sex: Male

DRUGS (1)
  1. EQUATE NAPROXEN SODIUM [Suspect]
     Active Substance: NAPROXEN SODIUM
     Indication: MYALGIA
     Dosage: DOSE: 1-2 CAPSULES??TOOK 2 CAPSULES BEFORE BEDT
     Route: 048
     Dates: start: 20170602

REACTIONS (2)
  - Wrong technique in product usage process [Not Recovered/Not Resolved]
  - Oral discomfort [Recovered/Resolved]

NARRATIVE: CASE EVENT DATE: 20170602
